FAERS Safety Report 20491327 (Version 3)
Quarter: 2022Q1

REPORT INFORMATION
  Report Type: Report from Study
  Country: TR (occurrence: TR)
  Receive Date: 20220218
  Receipt Date: 20220331
  Transmission Date: 20220424
  Serious: Yes (Death, Life-Threatening, Hospitalization)
  Sender: FDA-Public Use
  Company Number: TR-NOVARTISPH-NVSC2022TR037309

PATIENT
  Age: 77 Year
  Sex: Female
  Weight: 59.8 kg

DRUGS (5)
  1. LETROZOLE [Suspect]
     Active Substance: LETROZOLE
     Indication: Invasive ductal breast carcinoma
     Dosage: 2.5 MG, QD
     Route: 048
     Dates: start: 20181211, end: 20200217
  2. LETROZOLE [Suspect]
     Active Substance: LETROZOLE
     Dosage: UNK
     Route: 048
     Dates: start: 20200218
  3. METOPROLOL SUCCINATE [Concomitant]
     Active Substance: METOPROLOL SUCCINATE
     Indication: Mitral valve replacement
     Dosage: UNK
     Route: 065
     Dates: start: 199709
  4. COUMADIN [Concomitant]
     Active Substance: WARFARIN SODIUM
     Indication: Mitral valve replacement
     Dosage: UNK
     Route: 065
     Dates: start: 199709
  5. ANASTROZOLE [Concomitant]
     Active Substance: ANASTROZOLE
     Indication: Product used for unknown indication
     Dosage: UNK
     Route: 065

REACTIONS (1)
  - Multiple organ dysfunction syndrome [Fatal]

NARRATIVE: CASE EVENT DATE: 20210719
